FAERS Safety Report 24178075 (Version 1)
Quarter: 2024Q3

REPORT INFORMATION
  Report Type: Spontaneous
  Country: US (occurrence: US)
  Receive Date: 20240806
  Receipt Date: 20240806
  Transmission Date: 20241017
  Serious: No
  Sender: SANOFI AVENTIS
  Company Number: US-SA-SAC20240805000091

PATIENT
  Age: 60 Year
  Sex: Female

DRUGS (38)
  1. DUPIXENT [Suspect]
     Active Substance: DUPILUMAB
     Indication: Dermatitis atopic
     Dosage: 300 MG
     Route: 058
     Dates: start: 20240412
  2. ALBUTEROL SULFATE [Concomitant]
     Active Substance: ALBUTEROL SULFATE
  3. ATORVASTATIN [Concomitant]
     Active Substance: ATORVASTATIN
  4. AZITHROMYCIN [Concomitant]
     Active Substance: AZITHROMYCIN
  5. BENZONATATE [Concomitant]
     Active Substance: BENZONATATE
  6. CLOBETASOL [Concomitant]
     Active Substance: CLOBETASOL
  7. CLOPIDOGREL [Concomitant]
     Active Substance: CLOPIDOGREL BISULFATE
  8. EZETIMIBE [Concomitant]
     Active Substance: EZETIMIBE
  9. FAMOTIDINE [Concomitant]
     Active Substance: FAMOTIDINE
  10. FOLIC ACID [Concomitant]
     Active Substance: FOLIC ACID
  11. GABAPENTIN [Concomitant]
     Active Substance: GABAPENTIN
  12. HUMIRA [Concomitant]
     Active Substance: ADALIMUMAB
  13. HUMIRA [Concomitant]
     Active Substance: ADALIMUMAB
  14. LIOTHYRONINE [Concomitant]
     Active Substance: LIOTHYRONINE
  15. METHOTREXATE [Concomitant]
     Active Substance: METHOTREXATE
  16. ONDANSETRON [Concomitant]
     Active Substance: ONDANSETRON
  17. OXYCODONE [Concomitant]
     Active Substance: OXYCODONE
  18. PIMECROLIMUS [Concomitant]
     Active Substance: PIMECROLIMUS
  19. PREDNISOLONE [Concomitant]
     Active Substance: PREDNISOLONE
  20. PREDNISONE [Concomitant]
     Active Substance: PREDNISONE
  21. PROMETHAZINE DM [Concomitant]
     Active Substance: DEXTROMETHORPHAN HYDROBROMIDE\PROMETHAZINE HYDROCHLORIDE
  22. ROSUVASTATIN [Concomitant]
     Active Substance: ROSUVASTATIN\ROSUVASTATIN CALCIUM
  23. TERBINAFINE [Concomitant]
     Active Substance: TERBINAFINE
  24. TRAMADOL HCL [Concomitant]
     Active Substance: TRAMADOL HYDROCHLORIDE
  25. TRAZODONE [Concomitant]
     Active Substance: TRAZODONE HYDROCHLORIDE
  26. UBRELVY [Concomitant]
     Active Substance: UBROGEPANT
  27. ZOLPIDEM [Concomitant]
     Active Substance: ZOLPIDEM TARTRATE
  28. TRIAMCINOLONE [Concomitant]
     Active Substance: TRIAMCINOLONE
  29. TIZANIDINE [Concomitant]
     Active Substance: TIZANIDINE
  30. PROMETHAZINE [Concomitant]
     Active Substance: PROMETHAZINE HYDROCHLORIDE
  31. METHYLPREDNISOLONE [Concomitant]
     Active Substance: METHYLPREDNISOLONE
  32. LEVOTHYROXINE [Concomitant]
     Active Substance: LEVOTHYROXINE\LEVOTHYROXINE SODIUM
  33. HYDROXYZINE HYDROCHLORIDE [Concomitant]
     Active Substance: HYDROXYZINE HYDROCHLORIDE
  34. HYDROXYCHLOROQUINE SULFATE [Concomitant]
     Active Substance: HYDROXYCHLOROQUINE SULFATE
  35. DEXAMETHASONE [Concomitant]
     Active Substance: DEXAMETHASONE
  36. CYCLOBENZAPRINE [Concomitant]
     Active Substance: CYCLOBENZAPRINE
  37. BROM/PSE/DM [Concomitant]
  38. ALBUTEROL [Concomitant]
     Active Substance: ALBUTEROL

REACTIONS (2)
  - Sleep disorder due to a general medical condition [Not Recovered/Not Resolved]
  - Fatigue [Not Recovered/Not Resolved]

NARRATIVE: CASE EVENT DATE: 20240601
